FAERS Safety Report 6718350-2 (Version None)
Quarter: 2010Q2

REPORT INFORMATION
  Report Type: 
  Country: None (occurrence: None)
  Receive Date: 20100504
  Receipt Date: 20100426
  Transmission Date: 20101027
  Serious: Yes (Hospitalization)
  Sender: FDA-Public Use
  Company Number: 572276

PATIENT
  Sex: Male

DRUGS (3)
  1. HEPARIN SODIUM [Suspect]
     Indication: DRUG USE FOR UNKNOWN INDICATION
     Dosage: INTRAVENOUS;
     Route: 042
  2. INTEGRILIN [Suspect]
     Indication: DRUG USE FOR UNKNOWN INDICATION
  3. PLAVIX [Suspect]
     Indication: DRUG USE FOR UNKNOWN INDICATION

REACTIONS (2)
  - NEUTROPENIA [None]
  - WHITE BLOOD CELL COUNT DECREASED [None]
